FAERS Safety Report 5729425-9 (Version None)
Quarter: 2008Q2

REPORT INFORMATION
  Report Type: 
  Country: None (occurrence: None)
  Receive Date: 20080501
  Receipt Date: 20080417
  Transmission Date: 20081010
  Serious: Yes (Hospitalization)
  Sender: FDA-Public Use
  Company Number: 2007BI019820

PATIENT
  Age: 35 Year
  Sex: Male

DRUGS (3)
  1. TYSABRI [Suspect]
     Indication: MULTIPLE SCLEROSIS
     Dosage: 300 MG;QM;IV
     Route: 042
     Dates: start: 20070103
  2. EXCEDRIN (MIGRAINE) [Concomitant]
  3. PEPCID [Concomitant]

REACTIONS (3)
  - DUODENAL OBSTRUCTION [None]
  - DUODENAL ULCER PERFORATION [None]
  - OBSTRUCTION GASTRIC [None]
